FAERS Safety Report 9283038 (Version 1)
Quarter: 2013Q2

REPORT INFORMATION
  Report Type: Report from Study
  Country: LB (occurrence: LB)
  Receive Date: 20130510
  Receipt Date: 20130510
  Transmission Date: 20140414
  Serious: Yes (Hospitalization)
  Sender: FDA-Public Use
  Company Number: LB-SANOFI-AVENTIS-2013SA045972

PATIENT
  Age: 73 Year
  Sex: Male

DRUGS (6)
  1. LANTUS SOLOSTAR [Suspect]
     Indication: DIABETES MELLITUS
     Dosage: START DATE: 10 YEARS AGO DOSE:22 UNIT(S)
     Route: 058
     Dates: start: 2003
  2. SOLOSTAR [Suspect]
     Indication: DEVICE THERAPY
     Dates: start: 2003
  3. APROVEL [Concomitant]
     Indication: HYPERTENSION
     Route: 048
  4. ASPICOT [Concomitant]
     Indication: DIABETES MELLITUS
     Route: 048
  5. GLUCOPHAGE [Concomitant]
     Indication: DIABETES MELLITUS
     Route: 048
  6. SIOFOR [Concomitant]
     Indication: DIABETES MELLITUS
     Route: 048

REACTIONS (2)
  - Fall [Not Recovered/Not Resolved]
  - Spinal disorder [Not Recovered/Not Resolved]
